FAERS Safety Report 8987709 (Version 1)
Quarter: 2012Q4

REPORT INFORMATION
  Report Type: 
  Country: US (occurrence: US)
  Receive Date: 20121227
  Receipt Date: 20121227
  Transmission Date: 20130627
  Serious: No
  Sender: FDA-Public Use
  Company Number: US-PFIZER INC-2012324899

PATIENT
  Age: 58 Year
  Sex: Female
  Weight: 56.69 kg

DRUGS (2)
  1. VIBRAMYCIN [Suspect]
     Indication: LYME^S DISEASE
     Dosage: 100 mg, alternate day
     Dates: start: 200306
  2. VIBRAMYCIN [Suspect]
     Indication: NERVOUS SYSTEM DISORDER

REACTIONS (2)
  - Drug ineffective [Not Recovered/Not Resolved]
  - Jarisch-Herxheimer reaction [Recovered/Resolved]
